FAERS Safety Report 8175603 (Version 5)
Quarter: 2012Q4

REPORT INFORMATION
  Report Type: 
  Country: US (occurrence: US)
  Receive Date: 20111011
  Receipt Date: 20120926
  Transmission Date: 20130627
  Serious: No
  Sender: FDA-Public Use
  Company Number: US-JNJFOC-20111002584

PATIENT
  Age: 31 None
  Sex: Female
  Weight: 68.04 kg

DRUGS (22)
  1. FENTANYL TRANSDERMAL SYSTEM [Suspect]
     Indication: BACK PAIN
     Dosage: every 60 hours
     Route: 062
     Dates: start: 2007, end: 2012
  2. FENTANYL TRANSDERMAL SYSTEM [Suspect]
     Indication: RHEUMATOID ARTHRITIS
     Dosage: every 60 hours
     Route: 062
     Dates: start: 2007, end: 2012
  3. FENTANYL TRANSDERMAL SYSTEM [Suspect]
     Indication: FIBROMYALGIA
     Dosage: every 60 hours
     Route: 062
     Dates: start: 2007, end: 2012
  4. FENTANYL TRANSDERMAL SYSTEM [Suspect]
     Indication: INTERVERTEBRAL DISC DEGENERATION
     Dosage: every 60 hours
     Route: 062
     Dates: start: 2007, end: 2012
  5. FENTANYL TRANSDERMAL SYSTEM [Suspect]
     Indication: ARTHRITIS
     Dosage: every 60 hours
     Route: 062
     Dates: start: 2007, end: 2012
  6. FENTANYL TRANSDERMAL SYSTEM [Suspect]
     Indication: PAIN
     Dosage: every 60 hours
     Route: 062
     Dates: start: 2007, end: 2012
  7. PERCOCET [Suspect]
     Indication: RHEUMATOID ARTHRITIS
     Route: 048
     Dates: start: 2012, end: 2012
  8. PERCOCET [Suspect]
     Indication: FIBROMYALGIA
     Route: 048
     Dates: start: 2012, end: 2012
  9. PERCOCET [Suspect]
     Indication: INTERVERTEBRAL DISC DEGENERATION
     Route: 048
     Dates: start: 2012, end: 2012
  10. PERCOCET [Suspect]
     Indication: BACK PAIN
     Route: 048
     Dates: start: 2012, end: 2012
  11. OXYCODONE [Suspect]
     Indication: RHEUMATOID ARTHRITIS
     Route: 048
     Dates: start: 2012, end: 2012
  12. OXYCODONE [Suspect]
     Indication: FIBROMYALGIA
     Route: 048
     Dates: start: 2012, end: 2012
  13. OXYCODONE [Suspect]
     Indication: INTERVERTEBRAL DISC DEGENERATION
     Route: 048
     Dates: start: 2012, end: 2012
  14. OXYCODONE [Suspect]
     Indication: BACK PAIN
     Route: 048
     Dates: start: 2012, end: 2012
  15. METHOTREXATE [Suspect]
     Indication: RHEUMATOID ARTHRITIS
     Route: 048
     Dates: start: 2012, end: 2012
  16. METHOTREXATE [Suspect]
     Indication: FIBROMYALGIA
     Route: 048
     Dates: start: 2012, end: 2012
  17. METHOTREXATE [Suspect]
     Indication: INTERVERTEBRAL DISC DEGENERATION
     Route: 048
     Dates: start: 2012, end: 2012
  18. METHOTREXATE [Suspect]
     Indication: BACK PAIN
     Route: 048
     Dates: start: 2012, end: 2012
  19. TRAMADOL HYDROCHLORIDE [Suspect]
     Indication: RHEUMATOID ARTHRITIS
     Dosage: 100 mg, 50 mg every 4-6 hours
     Route: 048
     Dates: start: 2007
  20. TRAMADOL HYDROCHLORIDE [Suspect]
     Indication: FIBROMYALGIA
     Dosage: 100 mg, 50 mg every 4-6 hours
     Route: 048
     Dates: start: 2007
  21. TRAMADOL HYDROCHLORIDE [Suspect]
     Indication: INTERVERTEBRAL DISC DEGENERATION
     Dosage: 100 mg, 50 mg every 4-6 hours
     Route: 048
     Dates: start: 2007
  22. TRAMADOL HYDROCHLORIDE [Suspect]
     Indication: BACK PAIN
     Dosage: 100 mg, 50 mg every 4-6 hours
     Route: 048
     Dates: start: 2007

REACTIONS (7)
  - Withdrawal syndrome [Recovered/Resolved]
  - Muscle twitching [Recovered/Resolved]
  - Inappropriate schedule of drug administration [Recovered/Resolved]
  - Hot flush [Recovered/Resolved]
  - Drug prescribing error [Unknown]
  - Incorrect drug administration duration [Unknown]
  - Drug ineffective [Not Recovered/Not Resolved]
